FAERS Safety Report 19463303 (Version 1)
Quarter: 2021Q2

REPORT INFORMATION
  Report Type: Spontaneous
  Country: CA (occurrence: CA)
  Receive Date: 20210625
  Receipt Date: 20210625
  Transmission Date: 20210717
  Serious: Yes (Other)
  Sender: FDA-Public Use
  Company Number: CA-TEVA-2021-CA-1925230

PATIENT
  Sex: Female

DRUGS (1)
  1. TEVA?FENTANYL [Suspect]
     Active Substance: FENTANYL
     Indication: PRODUCT USED FOR UNKNOWN INDICATION
     Dosage: 12.5MICROGRAM/HOUR, STRENGTH 25MCG/HR
     Route: 062

REACTIONS (9)
  - Pain [Not Recovered/Not Resolved]
  - Incorrect disposal of product [Unknown]
  - Saliva altered [Not Recovered/Not Resolved]
  - Hallucination [Not Recovered/Not Resolved]
  - Skin exfoliation [Not Recovered/Not Resolved]
  - Dry skin [Not Recovered/Not Resolved]
  - Constipation [Not Recovered/Not Resolved]
  - Insomnia [Not Recovered/Not Resolved]
  - Somnolence [Not Recovered/Not Resolved]
